FAERS Safety Report 5051179-2 (Version None)
Quarter: 2006Q3

REPORT INFORMATION
  Report Type: 
  Country: None (occurrence: None)
  Receive Date: 20060714
  Receipt Date: 20060608
  Transmission Date: 20061208
  Serious: Yes (Life-Threatening, Hospitalization)
  Sender: FDA-Public Use
  Company Number: ZA-ROCHE-451621

PATIENT
  Age: 69 Year
  Sex: Female
  Weight: 96 kg

DRUGS (4)
  1. PEGASYS [Suspect]
     Indication: DRUG USE FOR UNKNOWN INDICATION
     Route: 058
     Dates: start: 20060320
  2. PEGASYS [Suspect]
     Route: 058
     Dates: end: 20060520
  3. COZAAR [Concomitant]
     Route: 048
  4. PREMARIN [Concomitant]
     Route: 048

REACTIONS (7)
  - CEREBRAL ATROPHY [None]
  - COGNITIVE DISORDER [None]
  - FALL [None]
  - MEMORY IMPAIRMENT [None]
  - PLATELET COUNT DECREASED [None]
  - SOMNOLENCE [None]
  - SUBDURAL HAEMATOMA [None]
